FAERS Safety Report 7792593-1 (Version None)
Quarter: 2011Q4

REPORT INFORMATION
  Report Type: 
  Country: None (occurrence: None)
  Receive Date: 20111003
  Receipt Date: 20110922
  Transmission Date: 20120403
  Serious: Yes (Hospitalization, Other)
  Sender: FDA-Public Use
  Company Number: DE-VERTEX PHARMACEUTICALS INC.-AE-2011-001833

PATIENT
  Age: 52 Year
  Sex: Male
  Weight: 80 kg

DRUGS (3)
  1. RIBAVIRIN [Concomitant]
     Indication: HEPATITIS C
     Route: 048
  2. VX-950 [Suspect]
     Indication: HEPATITIS C
     Route: 048
     Dates: start: 20110713
  3. PEG INTERFERON [Concomitant]
     Indication: HEPATITIS C
     Route: 058

REACTIONS (6)
  - HYPERCATABOLISM [None]
  - DEHYDRATION [None]
  - RENAL FAILURE [None]
  - HYPERGLYCAEMIA [None]
  - KETOACIDOSIS [None]
  - ANAEMIA [None]
